FAERS Safety Report 21304724 (Version 1)
Quarter: 2022Q3

REPORT INFORMATION
  Report Type: Spontaneous
  Country: US (occurrence: None)
  Receive Date: 20220907
  Receipt Date: 20220907
  Transmission Date: 20221026
  Serious: No
  Sender: FDA-Public Use
  Company Number: US-ARIS GLOBAL-202109-1618

PATIENT
  Sex: Female
  Weight: 54.480 kg

DRUGS (4)
  1. OXERVATE [Suspect]
     Active Substance: CENEGERMIN-BKBJ
     Indication: Neurotrophic keratopathy
     Route: 047
     Dates: start: 20210831
  2. GABAPENTIN [Concomitant]
     Active Substance: GABAPENTIN
  3. VALTREX [Concomitant]
     Active Substance: VALACYCLOVIR HYDROCHLORIDE
  4. REFRESH CLASSIC [Concomitant]
     Active Substance: POLYVINYL ALCOHOL\POVIDONE

REACTIONS (7)
  - Ocular discomfort [Unknown]
  - Lacrimation increased [Not Recovered/Not Resolved]
  - Product administration error [Unknown]
  - Eye swelling [Not Recovered/Not Resolved]
  - Eyelid margin crusting [Unknown]
  - Rash [Unknown]
  - Eye irritation [Unknown]
